FAERS Safety Report 9068832 (Version 1)
Quarter: 2013Q1

REPORT INFORMATION
  Report Type: Spontaneous
  Country: JP (occurrence: None)
  Receive Date: 20130122
  Receipt Date: 20130122
  Transmission Date: 20140127
  Serious: Yes (Hospitalization)
  Sender: FDA-Public Use
  Company Number: JP-ZYDUS-000911

PATIENT
  Age: 56 Year
  Sex: Female

DRUGS (1)
  1. DONEPEZIL [Suspect]
     Dosage: 1.0DAYS
     Route: 048

REACTIONS (4)
  - Behavioural and psychiatric symptoms of dementia [None]
  - Condition aggravated [None]
  - Agitation [None]
  - Aggression [None]
